FAERS Safety Report 7035577-3 (Version None)
Quarter: 2010Q4

REPORT INFORMATION
  Report Type: 
  Country: None (occurrence: None)
  Receive Date: 20101008
  Receipt Date: 20100930
  Transmission Date: 20110411
  Serious: Yes (Hospitalization)
  Sender: FDA-Public Use
  Company Number: AT-PFIZER INC-2010112505

PATIENT
  Age: 63 Year
  Sex: Female
  Weight: 40.3 kg

DRUGS (19)
  1. IRINOTECAN HCL [Suspect]
     Indication: COLORECTAL CANCER METASTATIC
     Dosage: 252 MG, CYCLIC (D1, D15)
     Route: 042
     Dates: start: 20100708, end: 20100904
  2. CETUXIMAB [Suspect]
     Indication: COLORECTAL CANCER METASTATIC
     Dosage: 350 MG, CYCLIC (D1, D8, D15)
     Route: 042
     Dates: start: 20100708, end: 20100904
  3. FLUOROURACIL [Suspect]
     Indication: COLORECTAL CANCER METASTATIC
     Dosage: 3360 MG, CYCLIC (D1, D15)
     Route: 042
     Dates: start: 20100708, end: 20100904
  4. FOLINIC ACID [Suspect]
     Indication: COLORECTAL CANCER METASTATIC
     Dosage: 560 MG, CYCLIC (D1, D15)
     Route: 042
     Dates: start: 20100708, end: 20100904
  5. VENLAFAXINE [Concomitant]
     Dosage: 150 MG DAILY
     Route: 048
     Dates: start: 20100708
  6. EXELON [Concomitant]
     Dosage: 4.6 MG DAILY
     Route: 062
     Dates: start: 20100715
  7. MINOSTAD [Concomitant]
     Dosage: 50 MG, 2X/DAY
     Route: 048
     Dates: start: 20100722, end: 20100904
  8. MINOSTAD [Concomitant]
     Dosage: 50 MG, 2X/DAY
     Route: 048
     Dates: start: 20100907, end: 20100910
  9. FILGRASTIM [Concomitant]
     Dosage: 30000000 IU DAILY
     Route: 058
     Dates: start: 20100903, end: 20100905
  10. GENTAMICIN SULFATE [Concomitant]
     Dosage: UNK
  11. NAVOBAN [Concomitant]
     Dosage: 5 MG DAILY
     Route: 048
     Dates: start: 20100708, end: 20100903
  12. MOTILIUM [Concomitant]
     Dosage: 20 MG, 3X/DAY
     Route: 048
     Dates: start: 20100708, end: 20100710
  13. MOTILIUM [Concomitant]
     Dosage: 10 MG, 3X/DAY
     Route: 048
     Dates: start: 20100711, end: 20100713
  14. MOTILIUM [Concomitant]
     Dosage: 10 MG, AS NEEDED
     Route: 048
     Dates: start: 20100714, end: 20100904
  15. KALIORAL [Concomitant]
     Dosage: 1 DF, 1X/DAY
     Route: 048
     Dates: start: 20100902, end: 20100901
  16. FRAGMIN [Concomitant]
     Dosage: 5000 IU, 1X/DAY
     Route: 058
     Dates: start: 20100908, end: 20100928
  17. ANAEROBEX [Concomitant]
     Dosage: 1 DF, 3X/DAY
     Route: 048
     Dates: start: 20100917, end: 20100927
  18. PASPERTIN [Concomitant]
     Dosage: 20 GTT, AS NEEDED
     Route: 048
     Dates: start: 20100915, end: 20100926
  19. MEXALEN [Concomitant]
     Dosage: 500 MG, 1X/DAY
     Route: 048
     Dates: start: 20100916, end: 20100916

REACTIONS (3)
  - DECREASED APPETITE [None]
  - DEMENTIA [None]
  - DIARRHOEA [None]
